FAERS Safety Report 7441866-0 (Version None)
Quarter: 2011Q2

REPORT INFORMATION
  Report Type: 
  Country: None (occurrence: None)
  Receive Date: 20110428
  Receipt Date: 20110415
  Transmission Date: 20111010
  Serious: Yes (Hospitalization, Other)
  Sender: FDA-Public Use
  Company Number: BR-ELI_LILLY_AND_COMPANY-BR201104006394

PATIENT
  Age: 75 Year
  Sex: Female

DRUGS (11)
  1. OLANZAPINE [Suspect]
     Dosage: 2.5 MG, QD
  2. OLANZAPINE [Suspect]
     Dosage: 15 MG, QD
  3. ACETYLSALICYLIC ACID SRT [Concomitant]
     Dosage: 100 MG, QD
  4. CHLORPROMAZINE [Concomitant]
     Dosage: 300 MG, QD
  5. PAROXETINE HCL [Concomitant]
     Dosage: 20 MG, QD
  6. VALPROATE SODIUM [Concomitant]
     Dosage: 1000 MG, QD
  7. OLANZAPINE [Suspect]
     Dosage: 10 MG, QD
  8. OLANZAPINE [Suspect]
     Dosage: 5 MG, QD
  9. HALOPERIDOL [Concomitant]
     Dosage: 10 MG, QD
  10. ALENDRONATE SODIUM [Concomitant]
     Dosage: 70 MG, WEEKLY (1/W)
  11. VALPROATE SODIUM [Concomitant]
     Dosage: 1000 MG, QD

REACTIONS (4)
  - SALIVARY HYPERSECRETION [None]
  - APHASIA [None]
  - DRUG INTERACTION [None]
  - MEMORY IMPAIRMENT [None]
